FAERS Safety Report 11308149 (Version 12)
Quarter: 2017Q4

REPORT INFORMATION
  Report Type: Report from Study
  Country: AU (occurrence: AU)
  Receive Date: 20150724
  Receipt Date: 20171205
  Transmission Date: 20180320
  Serious: Yes (Hospitalization, Other)
  Sender: FDA-Public Use
  Company Number: AU-BRISTOL-MYERS SQUIBB COMPANY-BMS-2015-005313

PATIENT
  Sex: Male

DRUGS (10)
  1. GLYADE [Concomitant]
     Indication: PRODUCT USED FOR UNKNOWN INDICATION
     Route: 065
  2. HCT [Concomitant]
     Active Substance: HYDROCHLOROTHIAZIDE
     Indication: PRODUCT USED FOR UNKNOWN INDICATION
     Route: 065
  3. SPIRACTIN                          /00006201/ [Concomitant]
     Active Substance: SPIRONOLACTONE
     Indication: PRODUCT USED FOR UNKNOWN INDICATION
     Route: 065
  4. DASATINIB. [Suspect]
     Active Substance: DASATINIB
     Indication: CHRONIC MYELOID LEUKAEMIA
     Dosage: 100 MG, QD
     Route: 048
     Dates: start: 20141205
  5. JANUMET [Concomitant]
     Active Substance: METFORMIN HYDROCHLORIDE\SITAGLIPTIN PHOSPHATE
     Indication: PRODUCT USED FOR UNKNOWN INDICATION
     Route: 065
  6. TRADJENTA [Concomitant]
     Active Substance: LINAGLIPTIN
     Indication: PRODUCT USED FOR UNKNOWN INDICATION
     Route: 065
  7. LINAGLIPTIN [Concomitant]
     Active Substance: LINAGLIPTIN
     Indication: PRODUCT USED FOR UNKNOWN INDICATION
     Dosage: UNK UNK, QD
     Route: 065
  8. AMLODIPINE [Concomitant]
     Active Substance: AMLODIPINE BESYLATE
     Indication: PRODUCT USED FOR UNKNOWN INDICATION
     Route: 065
  9. AVAPRO [Concomitant]
     Active Substance: IRBESARTAN
     Indication: PRODUCT USED FOR UNKNOWN INDICATION
     Route: 065
  10. ASPIRIN                            /00002701/ [Concomitant]
     Active Substance: ASPIRIN
     Indication: PRODUCT USED FOR UNKNOWN INDICATION
     Dosage: 100MG
     Route: 065

REACTIONS (33)
  - Lithotripsy [Unknown]
  - Skin neoplasm excision [Unknown]
  - Drug dose omission [Unknown]
  - Weight increased [Unknown]
  - Restless legs syndrome [Unknown]
  - Nephrolithiasis [Unknown]
  - Pulmonary hypertension [Unknown]
  - Anxiety [Not Recovered/Not Resolved]
  - Diarrhoea [Unknown]
  - Pleural effusion [Unknown]
  - Osteomyelitis [Unknown]
  - Fatigue [Not Recovered/Not Resolved]
  - Sepsis [Unknown]
  - Pulmonary oedema [Unknown]
  - Basal cell carcinoma [Unknown]
  - Localised infection [Unknown]
  - Retinal haemorrhage [Recovering/Resolving]
  - Vision blurred [Unknown]
  - Headache [Not Recovered/Not Resolved]
  - Diabetic complication [Unknown]
  - Lethargy [Unknown]
  - Malignant neoplasm progression [Unknown]
  - Snoring [Unknown]
  - Pneumonia [Recovered/Resolved]
  - Depression [Not Recovered/Not Resolved]
  - Joint swelling [Unknown]
  - Erythema [Unknown]
  - Malaise [Unknown]
  - Toe amputation [Unknown]
  - Continuous positive airway pressure [Unknown]
  - Nausea [Recovered/Resolved]
  - Dizziness [Unknown]
  - Blood pressure increased [Unknown]
